FAERS Safety Report 12564202 (Version 1)
Quarter: 2016Q3

REPORT INFORMATION
  Report Type: Spontaneous
  Country: US (occurrence: None)
  Receive Date: 20160715
  Receipt Date: 20160715
  Transmission Date: 20161109
  Serious: Yes (Disabling)
  Sender: FDA-Public Use
  Company Number: None

PATIENT
  Age: 71 Year
  Sex: Female
  Weight: 63.5 kg

DRUGS (1)
  1. LATANOPROST SANDOZ [Suspect]
     Active Substance: LATANOPROST
     Indication: INTRAOCULAR PRESSURE INCREASED
     Route: 047

REACTIONS (5)
  - Blindness [None]
  - Alopecia [None]
  - Madarosis [None]
  - Dry eye [None]
  - Foreign body sensation in eyes [None]

NARRATIVE: CASE EVENT DATE: 20160614
